FAERS Safety Report 8317790-8 (Version None)
Quarter: 2012Q2

REPORT INFORMATION
  Report Type: 
  Country: None (occurrence: None)
  Receive Date: 20120427
  Receipt Date: 20120413
  Transmission Date: 20120825
  Serious: Yes (Hospitalization, Disabling)
  Sender: FDA-Public Use
  Company Number: US-MYLANLABS-2009AC000058

PATIENT
  Age: 48 Year
  Sex: Male
  Weight: 206 kg

DRUGS (38)
  1. FOSINOPRIL SODIUM [Concomitant]
  2. TORSEMIDE [Concomitant]
  3. DIGOXIN [Suspect]
     Indication: PRODUCT USED FOR UNKNOWN INDICATION
     Route: 048
     Dates: start: 20000401, end: 20090226
  4. BYETTA [Concomitant]
  5. METOPROLOL TARTRATE [Concomitant]
  6. ALLOPURINOL [Concomitant]
  7. METFORMIN HCL [Concomitant]
  8. FUROSEMIDE [Concomitant]
  9. FLONASE [Concomitant]
  10. NITROGLYCERIN [Concomitant]
  11. OXYCODONE HCL [Concomitant]
  12. MUCINEX [Concomitant]
  13. TRAMADOL HCL [Concomitant]
  14. COREG [Concomitant]
  15. KLOR-CON [Concomitant]
  16. ASPIRIN [Concomitant]
  17. MONOPRIL [Concomitant]
  18. PRILOSEC [Concomitant]
  19. PRAVASTATIN [Concomitant]
  20. WARFARIN SODIUM [Concomitant]
  21. ISOSORBIDE DINITRATE [Concomitant]
  22. SPIRONOLACTONE [Concomitant]
  23. SORBITOL 50PC INJ [Concomitant]
  24. ULTRAM [Concomitant]
  25. AZITHROMYCIN [Concomitant]
  26. COLCHICINE [Concomitant]
  27. CIPROFLOXACIN [Concomitant]
  28. SORBITOL 50PC INJ [Concomitant]
  29. AVANDIA [Concomitant]
  30. POTASSIUM CHLORIDE [Concomitant]
  31. BECLOMETHASONE DIPROPIONATE [Concomitant]
  32. CELEBREX [Concomitant]
  33. THEOPHYLLINE [Concomitant]
  34. GLUCOPHAGE [Concomitant]
  35. VYTORIN [Concomitant]
  36. PRANDIN /00882701/ [Concomitant]
  37. METOLAZONE [Concomitant]
  38. ALBUTEROL [Concomitant]

REACTIONS (85)
  - SLEEP APNOEA SYNDROME [None]
  - DEHYDRATION [None]
  - INTRACARDIAC THROMBUS [None]
  - PARAESTHESIA [None]
  - GLUCOSE TOLERANCE IMPAIRED [None]
  - DIABETES MELLITUS INADEQUATE CONTROL [None]
  - CARDIAC STRESS TEST [None]
  - FALL [None]
  - TENDERNESS [None]
  - ILL-DEFINED DISORDER [None]
  - DIABETES MELLITUS [None]
  - INTERNATIONAL NORMALISED RATIO INCREASED [None]
  - DISTURBANCE IN ATTENTION [None]
  - DEPRESSION [None]
  - GAIT DISTURBANCE [None]
  - BACK PAIN [None]
  - HAEMARTHROSIS [None]
  - LEFT VENTRICULAR DYSFUNCTION [None]
  - METABOLIC SYNDROME [None]
  - MYALGIA [None]
  - ANHEDONIA [None]
  - DIARRHOEA [None]
  - ABDOMINAL DISCOMFORT [None]
  - WEIGHT DECREASED [None]
  - CARDIAC FAILURE CONGESTIVE [None]
  - PLEURAL FIBROSIS [None]
  - CORONARY ARTERY DISEASE [None]
  - DIZZINESS [None]
  - HEADACHE [None]
  - HOSPITALISATION [None]
  - NAUSEA [None]
  - DECREASED APPETITE [None]
  - ACROCHORDON [None]
  - HYPERINSULINAEMIA [None]
  - MOOD ALTERED [None]
  - PALPITATIONS [None]
  - ACUTE PRERENAL FAILURE [None]
  - ASTHENIA [None]
  - HEART RATE IRREGULAR [None]
  - HYPERHIDROSIS [None]
  - TOXICITY TO VARIOUS AGENTS [None]
  - BLOOD CREATININE INCREASED [None]
  - VOMITING [None]
  - VISUAL IMPAIRMENT [None]
  - CONTINUOUS POSITIVE AIRWAY PRESSURE [None]
  - WEIGHT INCREASED [None]
  - BREATH SOUNDS ABNORMAL [None]
  - ECHOCARDIOGRAM ABNORMAL [None]
  - HYPOVENTILATION [None]
  - NEPHROPATHY [None]
  - EMOTIONAL DISTRESS [None]
  - CARDIOMYOPATHY [None]
  - BLOOD UREA INCREASED [None]
  - DYSPNOEA [None]
  - BLOOD GLUCOSE INCREASED [None]
  - HEART RATE DECREASED [None]
  - LABORATORY TEST ABNORMAL [None]
  - OSTEOARTHRITIS [None]
  - DISABILITY [None]
  - INJURY [None]
  - ECONOMIC PROBLEM [None]
  - PAIN [None]
  - ATRIAL FIBRILLATION [None]
  - FATIGUE [None]
  - HYPONATRAEMIA [None]
  - IRRITABILITY [None]
  - MYOCARDIAL ISCHAEMIA [None]
  - CONTUSION [None]
  - DYSPNOEA EXERTIONAL [None]
  - ERYTHEMA [None]
  - HYPERSOMNIA [None]
  - VISION BLURRED [None]
  - CHEST PAIN [None]
  - RENAL FAILURE CHRONIC [None]
  - PROTHROMBIN TIME PROLONGED [None]
  - ARTHRALGIA [None]
  - DEEP VEIN THROMBOSIS [None]
  - EJECTION FRACTION [None]
  - FLUSHING [None]
  - OBESITY [None]
  - OEDEMA PERIPHERAL [None]
  - OXYGEN SATURATION [None]
  - PYREXIA [None]
  - WEIGHT BEARING DIFFICULTY [None]
  - X-RAY ABNORMAL [None]
